FAERS Safety Report 25124174 (Version 1)
Quarter: 2025Q1

REPORT INFORMATION
  Report Type: Spontaneous
  Country: IN (occurrence: IN)
  Receive Date: 20250326
  Receipt Date: 20250326
  Transmission Date: 20250409
  Serious: Yes (Other)
  Sender: PFIZER
  Company Number: IN-PFIZER INC-2019147004

PATIENT
  Age: 53 Year
  Sex: Female

DRUGS (17)
  1. PALBOCICLIB [Suspect]
     Active Substance: PALBOCICLIB
     Indication: Breast cancer metastatic
     Route: 048
     Dates: start: 20181010
  2. PALBOCICLIB [Suspect]
     Active Substance: PALBOCICLIB
     Route: 048
     Dates: start: 20210624
  3. PALBOCICLIB [Suspect]
     Active Substance: PALBOCICLIB
     Route: 048
  4. PALBOCICLIB [Suspect]
     Active Substance: PALBOCICLIB
     Route: 048
     Dates: start: 2024
  5. PALBOCICLIB [Suspect]
     Active Substance: PALBOCICLIB
     Dates: start: 20241110, end: 20241130
  6. PALBOCICLIB [Suspect]
     Active Substance: PALBOCICLIB
     Route: 048
     Dates: start: 20241211
  7. FEMARA [Concomitant]
     Active Substance: LETROZOLE
     Indication: Breast cancer metastatic
     Dosage: 2.5 MG, 1X/DAY (1-0-0)
     Dates: start: 2018
  8. XGEVA [Concomitant]
     Active Substance: DENOSUMAB
     Route: 058
  9. FULVESTRANT [Concomitant]
     Active Substance: FULVESTRANT
     Route: 030
  10. FULVESTRANT [Concomitant]
     Active Substance: FULVESTRANT
     Route: 030
  11. FULVESTRANT [Concomitant]
     Active Substance: FULVESTRANT
     Route: 030
     Dates: start: 20241126
  12. FULVESTRANT [Concomitant]
     Active Substance: FULVESTRANT
     Route: 030
     Dates: start: 20241226
  13. CALCIUM\CHOLECALCIFEROL [Concomitant]
     Active Substance: CALCIUM\CHOLECALCIFEROL
     Dosage: 500 MG, 1X/DAY (ONCE A DAY; 1-0-0)
  14. DENOSUMAB [Concomitant]
     Active Substance: DENOSUMAB
     Route: 058
     Dates: start: 20241129
  15. DENOSUMAB [Concomitant]
     Active Substance: DENOSUMAB
     Route: 058
     Dates: start: 20241229
  16. CREATINE [Concomitant]
     Active Substance: CREATINE
     Route: 058
     Dates: start: 20250213
  17. CREATINE [Concomitant]
     Active Substance: CREATINE
     Route: 058
     Dates: start: 20250214

REACTIONS (15)
  - Metastases to bone [Unknown]
  - Cataract [Unknown]
  - Hyperchlorhydria [Unknown]
  - Ulcer [Unknown]
  - Lip injury [Unknown]
  - Liver function test decreased [Recovered/Resolved]
  - Vitamin D decreased [Unknown]
  - Vitamin B12 decreased [Unknown]
  - Arthralgia [Unknown]
  - Neutrophil percentage decreased [Not Recovered/Not Resolved]
  - Dysgeusia [Unknown]
  - Haemoglobin decreased [Recovering/Resolving]
  - White blood cell count decreased [Not Recovered/Not Resolved]
  - Diarrhoea [Unknown]
  - Neutrophil count decreased [Unknown]

NARRATIVE: CASE EVENT DATE: 20241202
